FAERS Safety Report 5285850-4 (Version None)
Quarter: 2007Q1

REPORT INFORMATION
  Report Type: 
  Country: None (occurrence: None)
  Receive Date: 20070329
  Receipt Date: 20070313
  Transmission Date: 20070707
  Serious: Yes (Other)
  Sender: FDA-Public Use
  Company Number: B0463288A

PATIENT
  Age: 23 Month
  Sex: Female

DRUGS (5)
  1. MYLERAN [Suspect]
     Indication: ASPIRATION BONE MARROW ABNORMAL
     Dosage: 37.5 MG/MIN/SEE DOSAGE TEXT/INTRAVENOUS
     Route: 042
  2. DAPSONE [Concomitant]
  3. PENTAMIDINE ISETHIONATE [Concomitant]
  4. CYANOCOBALAMIN [Concomitant]
  5. FOLIC ACID [Concomitant]

REACTIONS (4)
  - BONE MARROW FAILURE [None]
  - BONE MARROW TRANSPLANT [None]
  - PANCYTOPENIA [None]
  - TRISOMY 8 [None]
